FAERS Safety Report 21313103 (Version 2)
Quarter: 2022Q3

REPORT INFORMATION
  Report Type: Spontaneous
  Country: US (occurrence: US)
  Receive Date: 20220909
  Receipt Date: 20220919
  Transmission Date: 20221027
  Serious: No
  Sender: FDA-Public Use
  Company Number: US-LUPIN PHARMACEUTICALS INC.-2022-10916

PATIENT
  Age: 7 Year
  Sex: Male
  Weight: 29.478 kg

DRUGS (1)
  1. GAVILAX [Suspect]
     Active Substance: POLYETHYLENE GLYCOL 3350
     Indication: Constipation
     Dosage: UNK (ONE CAP OF FULL IN 8 OUNCES OF GATORADE EVERY DAY OR AS DIRECTED)
     Route: 048

REACTIONS (5)
  - Poor quality product administered [Unknown]
  - Product taste abnormal [Unknown]
  - Product odour abnormal [Unknown]
  - Product quality issue [Unknown]
  - No adverse event [Unknown]

NARRATIVE: CASE EVENT DATE: 20220831
